FAERS Safety Report 7742782-7 (Version None)
Quarter: 2011Q3

REPORT INFORMATION
  Report Type: 
  Country: None (occurrence: None)
  Receive Date: 20110817
  Receipt Date: 20110330
  Transmission Date: 20111222
  Serious: Yes (Hospitalization, Other)
  Sender: FDA-Public Use
  Company Number: 20109790

PATIENT
  Sex: Male

DRUGS (1)
  1. LIORESAL [Suspect]
     Indication: MUSCLE SPASTICITY
     Dosage: UNK MCG, DAILY, INTRATHECAL
     Route: 037

REACTIONS (9)
  - MENTAL STATUS CHANGES [None]
  - SOMNOLENCE [None]
  - SEPSIS [None]
  - INFECTION [None]
  - HEADACHE [None]
  - URINARY TRACT INFECTION [None]
  - MENINGITIS [None]
  - MUSCLE SPASTICITY [None]
  - PYREXIA [None]
